FAERS Safety Report 5475104-5 (Version None)
Quarter: 2007Q4

REPORT INFORMATION
  Report Type: 
  Country: None (occurrence: None)
  Receive Date: 20071002
  Receipt Date: 20070920
  Transmission Date: 20080405
  Serious: Yes (Death, Hospitalization)
  Sender: FDA-Public Use
  Company Number: DE-PFIZER INC-2006075040

PATIENT
  Sex: Male
  Weight: 70 kg

DRUGS (8)
  1. SU-011,248 [Suspect]
     Indication: METASTATIC RENAL CELL CARCINOMA
     Route: 048
     Dates: start: 20060112, end: 20060510
  2. SU-011,248 [Suspect]
     Route: 048
     Dates: start: 20060524, end: 20060605
  3. AMLODIPINE [Concomitant]
     Route: 048
     Dates: start: 20050901, end: 20060607
  4. TAMSULOSIN HCL [Concomitant]
     Route: 048
     Dates: start: 20050901, end: 20060607
  5. PREDNISOLONE [Concomitant]
     Route: 048
     Dates: start: 20050901, end: 20060607
  6. LISINOPRIL [Concomitant]
     Route: 048
     Dates: start: 20050901, end: 20060607
  7. SYMBICORT [Concomitant]
     Route: 048
     Dates: start: 20050901, end: 20060607
  8. FORADIL [Concomitant]
     Route: 048
     Dates: start: 20050901, end: 20060607

REACTIONS (1)
  - CEREBRAL HAEMORRHAGE [None]
